FAERS Safety Report 9223797 (Version 1)
Quarter: 2013Q2

REPORT INFORMATION
  Report Type: Spontaneous
  Country: US (occurrence: US)
  Receive Date: 20130410
  Receipt Date: 20130410
  Transmission Date: 20140414
  Serious: No
  Sender: FDA-Public Use
  Company Number: US-B.I. PHARMACEUTICALS,INC./RIDGEFIELD-2013-BI-09292BP

PATIENT
  Age: 68 Year
  Sex: Female

DRUGS (8)
  1. MOBIC [Suspect]
     Indication: ARTHRITIS
  2. PRISTIQ [Suspect]
     Indication: FATIGUE
     Dosage: 50 MG
     Route: 048
     Dates: start: 2012
  3. PRISTIQ [Suspect]
     Indication: FATIGUE
  4. PRISTIQ [Suspect]
     Indication: FEELING ABNORMAL
  5. TRAMADOL [Suspect]
     Indication: PAIN
     Dosage: 40 MG
     Route: 048
     Dates: start: 2011, end: 201212
  6. UNSPECIFIED NARCOTICS [Suspect]
  7. LEVOTHYROXINE [Concomitant]
     Indication: THYROID DISORDER
     Dosage: 0.075 MG
     Route: 048
  8. LEVOTHYROXINE [Concomitant]
     Indication: ARTHRITIS

REACTIONS (15)
  - Fatigue [Unknown]
  - Disorientation [Unknown]
  - Malaise [Unknown]
  - Middle insomnia [Unknown]
  - Asthenia [Recovered/Resolved]
  - Feeling abnormal [Recovered/Resolved]
  - Nausea [Unknown]
  - Restlessness [Unknown]
  - Abnormal dreams [Unknown]
  - Frustration [Unknown]
  - Anxiety [Unknown]
  - Epigastric discomfort [Unknown]
  - Expired drug administered [Unknown]
  - Euphoric mood [Unknown]
  - Drug physiologic incompatibility [Unknown]
